FAERS Safety Report 5360982-0 (Version None)
Quarter: 2007Q2

REPORT INFORMATION
  Report Type: 
  Country: None (occurrence: None)
  Receive Date: 20070618
  Receipt Date: 20070606
  Transmission Date: 20071010
  Serious: Yes (Hospitalization)
  Sender: FDA-Public Use
  Company Number: JP-PFIZER INC-2007042284

PATIENT
  Sex: Female

DRUGS (1)
  1. ZITHROMAC [Suspect]
     Indication: INFECTION PROPHYLAXIS
     Dosage: DAILY DOSE:500MG
     Dates: start: 20070501, end: 20070501

REACTIONS (1)
  - COLITIS ISCHAEMIC [None]
